FAERS Safety Report 10264217 (Version 2)
Quarter: 2014Q3

REPORT INFORMATION
  Report Type: Report from Study
  Country: US (occurrence: None)
  Receive Date: 20140624
  Receipt Date: 20140724
  Transmission Date: 20150326
  Serious: Yes (Death, Life-Threatening, Hospitalization, Other)
  Sender: FDA-Public Use
  Company Number: ADR-2014-01067

PATIENT
  Age: 32 Year
  Sex: Male

DRUGS (1)
  1. LIORESAL [Suspect]
     Active Substance: BACLOFEN
     Indication: MUSCLE SPASTICITY

REACTIONS (18)
  - Bacterial infection [None]
  - Cardiomegaly [None]
  - Metabolic acidosis [None]
  - Kabuki make-up syndrome [None]
  - Pre-existing disease [None]
  - Condition aggravated [None]
  - Bacteraemia [None]
  - Hyperkalaemia [None]
  - Septic shock [None]
  - Localised intraabdominal fluid collection [None]
  - Pleural effusion [None]
  - Convulsion [None]
  - Pulmonary vascular disorder [None]
  - Volume blood increased [None]
  - Streptococcus test positive [None]
  - Pulmonary oedema [None]
  - Renal failure acute [None]
  - Immunodeficiency common variable [None]

NARRATIVE: CASE EVENT DATE: 20140221
